FAERS Safety Report 18901747 (Version 4)
Quarter: 2021Q3

REPORT INFORMATION
  Report Type: Report from Study
  Country: US (occurrence: US)
  Receive Date: 20210216
  Receipt Date: 20210708
  Transmission Date: 20211014
  Serious: Yes (Other)
  Sender: FDA-Public Use
  Company Number: NVSC2021US029761

PATIENT
  Sex: Male

DRUGS (3)
  1. ENTRESTO [Suspect]
     Active Substance: SACUBITRIL\VALSARTAN
     Indication: CARDIAC FAILURE CONGESTIVE
     Dosage: UNK
     Route: 048
     Dates: start: 202010
  2. ENTRESTO [Suspect]
     Active Substance: SACUBITRIL\VALSARTAN
     Dosage: 100 MG, BID (49/51 MG)
     Route: 048
  3. ENTRESTO [Suspect]
     Active Substance: SACUBITRIL\VALSARTAN
     Dosage: UNK UNK, BID
     Route: 048
     Dates: start: 202010

REACTIONS (11)
  - Influenza [Unknown]
  - Vomiting [Unknown]
  - Decreased appetite [Unknown]
  - Rib fracture [Unknown]
  - Musculoskeletal chest pain [Unknown]
  - Sleep apnoea syndrome [Unknown]
  - Product dose omission issue [Unknown]
  - Coronary artery disease [Unknown]
  - Respiratory arrest [Unknown]
  - Weight decreased [Unknown]
  - Chronic left ventricular failure [Unknown]
